FAERS Safety Report 4793850-3 (Version None)
Quarter: 2005Q4

REPORT INFORMATION
  Report Type: 
  Country: None (occurrence: None)
  Receive Date: 20051006
  Receipt Date: 20051006
  Transmission Date: 20060501
  Serious: Yes (Hospitalization)
  Sender: FDA-Public Use
  Company Number: None

PATIENT
  Age: 42 Year
  Sex: Male
  Weight: 122 kg

DRUGS (1)
  1. FUROSEMIDE [Suspect]

REACTIONS (2)
  - HYPOKALAEMIA [None]
  - RENAL FAILURE ACUTE [None]
